FAERS Safety Report 5535086-4 (Version None)
Quarter: 2007Q4

REPORT INFORMATION
  Report Type: 
  Country: None (occurrence: None)
  Receive Date: 20071203
  Receipt Date: 20071119
  Transmission Date: 20080405
  Serious: Yes (Hospitalization, Disabling, Other)
  Sender: FDA-Public Use
  Company Number: 17906

PATIENT
  Age: 61 Year
  Sex: Female

DRUGS (3)
  1. CARBOPLATIN [Suspect]
     Indication: OVARIAN CANCER
     Dosage: 490 IV
     Route: 042
     Dates: start: 20060310, end: 20060602
  2. DEXAMETHASONE TAB [Concomitant]
  3. ONDANSETRON [Concomitant]

REACTIONS (1)
  - CEREBROVASCULAR ACCIDENT [None]
